FAERS Safety Report 4991181-X (Version None)
Quarter: 2006Q2

REPORT INFORMATION
  Report Type: 
  Country: None (occurrence: None)
  Receive Date: 20060427
  Receipt Date: 20060420
  Transmission Date: 20061013
  Serious: Yes (Hospitalization)
  Sender: FDA-Public Use
  Company Number: 2006054545

PATIENT
  Age: 57 Year
  Sex: Male

DRUGS (2)
  1. PHENYTOIN [Suspect]
     Indication: CONVULSION
     Dosage: 300 MG (300 MG, 1 IN 1 D), ORAL
     Route: 048
     Dates: start: 20050602, end: 20050621
  2. WARFARIN SODIUM [Concomitant]

REACTIONS (5)
  - CONJUNCTIVITIS [None]
  - GENITAL ULCERATION [None]
  - MOUTH ULCERATION [None]
  - PYREXIA [None]
  - TRANSAMINASES INCREASED [None]
